FAERS Safety Report 25337034 (Version 2)
Quarter: 2025Q2

REPORT INFORMATION
  Report Type: Spontaneous
  Country: US (occurrence: US)
  Receive Date: 20250520
  Receipt Date: 20250613
  Transmission Date: 20250717
  Serious: No
  Sender: MYLAN
  Company Number: US-MYLANLABS-2025M1039823

PATIENT
  Age: 44 Year
  Sex: Female
  Weight: 58.06 kg

DRUGS (2)
  1. FENTANYL TRANSDERMAL SYSTEM [Suspect]
     Active Substance: FENTANYL
     Indication: Spinal cord neoplasm
     Dosage: 100 MICROGRAM, QH (ONE PATCH EVERY 48 HOURS)
     Dates: start: 20250502
  2. FENTANYL TRANSDERMAL SYSTEM [Suspect]
     Active Substance: FENTANYL
     Indication: Spinal cord neoplasm
     Dosage: 50 MICROGRAM, QH (ONE PATCH EVERY 48 HOURS)
     Dates: start: 20250501

REACTIONS (3)
  - Wrong technique in product usage process [Unknown]
  - Off label use [Unknown]
  - Product adhesion issue [Unknown]

NARRATIVE: CASE EVENT DATE: 20250502
